FAERS Safety Report 4884476-1 (Version None)
Quarter: 2006Q1

REPORT INFORMATION
  Report Type: 
  Country: None (occurrence: None)
  Receive Date: 20060117
  Receipt Date: 20060109
  Transmission Date: 20060701
  Serious: Yes (Other)
  Sender: FDA-Public Use
  Company Number: 2006005268

PATIENT
  Sex: Female
  Weight: 56.6996 kg

DRUGS (1)
  1. UNISOM [Suspect]
     Indication: INSOMNIA
     Dosage: 1/2 TABLET 3-4 TIMES WEEKLY, ORAL
     Route: 048
     Dates: start: 20040101

REACTIONS (8)
  - ABDOMINAL PAIN UPPER [None]
  - DRUG DEPENDENCE [None]
  - DRY MOUTH [None]
  - FLATULENCE [None]
  - INFLUENZA LIKE ILLNESS [None]
  - NAUSEA [None]
  - SOMNOLENCE [None]
  - VISION BLURRED [None]
